APPROVED DRUG PRODUCT: DEXTROAMP SACCHARATE, AMP ASPARTATE, DEXTROAMP SULFATE AND AMP SULFATE
Active Ingredient: AMPHETAMINE ASPARTATE; AMPHETAMINE SULFATE; DEXTROAMPHETAMINE SACCHARATE; DEXTROAMPHETAMINE SULFATE
Strength: 2.5MG;2.5MG;2.5MG;2.5MG
Dosage Form/Route: CAPSULE, EXTENDED RELEASE;ORAL
Application: A076852 | Product #002 | TE Code: AB1
Applicant: IMPAX LABORATORIES INC
Approved: Feb 16, 2016 | RLD: No | RS: No | Type: RX